FAERS Safety Report 9302199 (Version 1)
Quarter: 2013Q2

REPORT INFORMATION
  Report Type: Spontaneous
  Country: US (occurrence: US)
  Receive Date: 20130522
  Receipt Date: 20130522
  Transmission Date: 20140414
  Serious: Yes (Hospitalization)
  Sender: FDA-Public Use
  Company Number: US-B.I. PHARMACEUTICALS,INC./RIDGEFIELD-2013-BI-13986BP

PATIENT
  Sex: 0

DRUGS (3)
  1. PRADAXA [Suspect]
  2. PRADAXA [Suspect]
  3. WARFARIN [Concomitant]

REACTIONS (1)
  - Thrombosis [Unknown]
